FAERS Safety Report 7912630-0 (Version None)
Quarter: 2011Q4

REPORT INFORMATION
  Report Type: 
  Country: None (occurrence: None)
  Receive Date: 20111114
  Receipt Date: 20111104
  Transmission Date: 20120403
  Serious: Yes (Hospitalization)
  Sender: FDA-Public Use
  Company Number: GB-PFIZER INC-2011271329

PATIENT
  Age: 76 Year
  Sex: Male

DRUGS (4)
  1. BEVACIZUMAB [Suspect]
     Indication: GASTRIC CANCER
     Dosage: 5600 (UNITS NOT REPORTED)
     Route: 048
     Dates: start: 20110727
  2. CAPECITABINE [Suspect]
     Indication: GASTRIC CANCER
     Dosage: 3500 (UNITS NOT REPORTED)
     Route: 048
     Dates: start: 20110727
  3. CISPLATIN [Suspect]
     Indication: GASTRIC CANCER
     Dosage: 112 (UNITS NOT REPORTED)
     Route: 048
     Dates: start: 20110727
  4. EPIRUBICIN HYDROCHLORIDE [Suspect]
     Indication: GASTRIC CANCER
     Dosage: 93 (UNITS NOT REPORTED)
     Route: 048
     Dates: start: 20110727

REACTIONS (2)
  - NEUTROPENIC SEPSIS [None]
  - HAEMOPTYSIS [None]
